FAERS Safety Report 9222208 (Version 2)
Quarter: 2013Q2

REPORT INFORMATION
  Report Type: Report from Study
  Country: MX (occurrence: MX)
  Receive Date: 20130410
  Receipt Date: 20130508
  Transmission Date: 20140414
  Serious: Yes (Death, Hospitalization)
  Sender: FDA-Public Use
  Company Number: PHHY2013MX034129

PATIENT
  Age: 12 Year
  Sex: Female

DRUGS (1)
  1. TRILEPTAL [Suspect]
     Indication: EPILEPSY
     Dosage: 6G/100 ML AT 1 DF, DAILY
     Route: 048
     Dates: start: 20130223

REACTIONS (4)
  - Urinary tract infection [Fatal]
  - Pneumonia [Fatal]
  - Pollakiuria [Fatal]
  - Convulsion [Fatal]
